FAERS Safety Report 24616709 (Version 1)
Quarter: 2024Q4

REPORT INFORMATION
  Report Type: Spontaneous
  Country: US (occurrence: US)
  Receive Date: 20241114
  Receipt Date: 20241114
  Transmission Date: 20250114
  Serious: No
  Sender: SANDOZ
  Company Number: US-SANDOZ-SDZ2024US093829

PATIENT
  Sex: Female
  Weight: 65.6 kg

DRUGS (21)
  1. PENICILLIN G SODIUM [Suspect]
     Active Substance: PENICILLIN G SODIUM
     Indication: Product used for unknown indication
     Route: 065
  2. AMITRIPTYLINE [Concomitant]
     Active Substance: AMITRIPTYLINE
     Indication: Product used for unknown indication
     Dosage: 24 MG, QD
     Route: 048
  3. AMLODIPINE [Concomitant]
     Active Substance: AMLODIPINE BESYLATE
     Indication: Product used for unknown indication
     Dosage: 5 MG
     Route: 048
  4. ASPIRIN [Concomitant]
     Active Substance: ASPIRIN
     Indication: Product used for unknown indication
     Dosage: 81 MG, QD
     Route: 048
  5. ATORVASTATIN [Concomitant]
     Active Substance: ATORVASTATIN
     Indication: Product used for unknown indication
     Dosage: 10 MG, QD
     Route: 048
  6. CLONAZEPAM [Concomitant]
     Active Substance: CLONAZEPAM
     Indication: Product used for unknown indication
     Dosage: 0.5 MG, BID
     Route: 048
  7. ERGOCALCIFEROL [Concomitant]
     Active Substance: ERGOCALCIFEROL
     Indication: Product used for unknown indication
     Dosage: 1.25 MG, QW
     Route: 048
  8. ALCOHOL [Concomitant]
     Active Substance: ALCOHOL
     Indication: Product used for unknown indication
     Dosage: UNK, BID
     Route: 061
  9. GABAPENTIN [Concomitant]
     Active Substance: GABAPENTIN
     Indication: Product used for unknown indication
     Dosage: 600 MG, BID
     Route: 048
  10. GABAPENTIN [Concomitant]
     Active Substance: GABAPENTIN
     Dosage: 800 MG, TID
     Route: 048
  11. HEPARIN [Concomitant]
     Active Substance: HEPARIN SODIUM
     Indication: Product used for unknown indication
     Dosage: 5000 ML, BID
     Route: 058
  12. IBRUTINIB [Concomitant]
     Active Substance: IBRUTINIB
     Indication: Product used for unknown indication
     Dosage: 420 MG, QD
     Route: 048
  13. LINZESS [Concomitant]
     Active Substance: LINACLOTIDE
     Indication: Product used for unknown indication
     Dosage: 145 UG, QD
     Route: 048
  14. LACTULOSE [Concomitant]
     Active Substance: LACTULOSE
     Indication: Product used for unknown indication
     Dosage: 4 TIMES A DAY
     Route: 065
  15. LISINOPRIL [Concomitant]
     Active Substance: LISINOPRIL
     Indication: Product used for unknown indication
     Dosage: 10 MG, BID
     Route: 048
  16. MELOXICAM [Concomitant]
     Active Substance: MELOXICAM
     Indication: Product used for unknown indication
     Dosage: 7.5 MG, QD
     Route: 048
  17. MIDODRINE [Concomitant]
     Active Substance: MIDODRINE
     Indication: Product used for unknown indication
     Dosage: 5 MG
     Route: 048
  18. OMEPRAZOLE [Concomitant]
     Active Substance: OMEPRAZOLE
     Indication: Product used for unknown indication
     Dosage: 40 MG, QD
     Route: 048
  19. POLYETHYLENE GLYCOL [Concomitant]
     Active Substance: POLYETHYLENE GLYCOL
     Indication: Product used for unknown indication
     Dosage: 17 G
     Route: 048
  20. PREDNISONE [Concomitant]
     Active Substance: PREDNISONE
     Indication: Product used for unknown indication
     Dosage: 5 MG, QD
     Route: 048
  21. TRAMADOL [Concomitant]
     Active Substance: TRAMADOL
     Indication: Pain
     Dosage: 50 MG, TID
     Route: 048

REACTIONS (2)
  - Pruritus [Unknown]
  - Drug hypersensitivity [Unknown]
